FAERS Safety Report 5537933-9 (Version None)
Quarter: 2007Q4

REPORT INFORMATION
  Report Type: 
  Country: None (occurrence: None)
  Receive Date: 20071120
  Receipt Date: 20070817
  Transmission Date: 20080405
  Serious: No
  Sender: FDA-Public Use
  Company Number: WAES 0708USA03365

PATIENT
  Age: 76 Year
  Sex: Female

DRUGS (8)
  1. JANUVIA [Suspect]
     Indication: TYPE 2 DIABETES MELLITUS
     Dosage: 100 MG/DAILY/PO
     Route: 048
     Dates: start: 20070810
  2. AMARYL [Concomitant]
  3. AVALIDE [Concomitant]
  4. CRESTOR [Concomitant]
  5. EVISTA [Concomitant]
  6. PROTONIX [Concomitant]
  7. ASPIRIN [Concomitant]
  8. METFORMIN HCL [Concomitant]

REACTIONS (1)
  - FATIGUE [None]
